FAERS Safety Report 10794191 (Version 3)
Quarter: 2015Q1

REPORT INFORMATION
  Report Type: Spontaneous
  Country: JP (occurrence: JP)
  Receive Date: 20150213
  Receipt Date: 20150224
  Transmission Date: 20150721
  Serious: Yes (Hospitalization)
  Sender: FDA-Public Use
  Company Number: JP-GSKJP-JP2014JPN004008AA

PATIENT
  Age: 85 Year
  Sex: Female

DRUGS (11)
  1. INNOLET 30R [Suspect]
     Active Substance: INSULIN NOS
     Route: 042
  2. OMEPRAL [Concomitant]
     Active Substance: OMEPRAZOLE
  3. SPIRONOLACTONE. [Concomitant]
     Active Substance: SPIRONOLACTONE
  4. CODEINE PHOSPHATE HYDRATE [Concomitant]
     Active Substance: CODEINE PHOSPHATE
     Dosage: 20 MG, TID
     Route: 048
  5. VALTREX [Suspect]
     Active Substance: VALACYCLOVIR HYDROCHLORIDE
     Indication: HERPES ZOSTER
     Dosage: UNK
     Route: 048
     Dates: start: 20141004, end: 20141008
  6. MUCOSTA [Concomitant]
     Active Substance: REBAMIPIDE
  7. CELECOX [Concomitant]
     Active Substance: CELECOXIB
  8. EPENARD [Concomitant]
  9. SENNOSIDE [Concomitant]
     Active Substance: SENNOSIDES
  10. FUROSEMIDE. [Concomitant]
     Active Substance: FUROSEMIDE
  11. CEPHADOL [Concomitant]
     Active Substance: DIPHENIDOL HYDROCHLORIDE

REACTIONS (1)
  - Hypoglycaemia [Recovered/Resolved]

NARRATIVE: CASE EVENT DATE: 20141006
